FAERS Safety Report 17421341 (Version 2)
Quarter: 2020Q1

REPORT INFORMATION
  Report Type: Spontaneous
  Country: FR (occurrence: FR)
  Receive Date: 20200214
  Receipt Date: 20200224
  Transmission Date: 20200409
  Serious: No
  Sender: FDA-Public Use
  Company Number: FR-ELI_LILLY_AND_COMPANY-FR202002002686

PATIENT
  Age: 50 Year
  Sex: Male

DRUGS (24)
  1. ABILIFY [Suspect]
     Active Substance: ARIPIPRAZOLE
     Dosage: 8 MG, DAILY
     Route: 048
  2. KREDEX [Suspect]
     Active Substance: CARVEDILOL
     Indication: PRODUCT USED FOR UNKNOWN INDICATION
     Dosage: 6/25MG DAILY
     Route: 048
  3. KREDEX [Suspect]
     Active Substance: CARVEDILOL
     Dosage: 6/25MG DAILY
     Route: 048
     Dates: start: 20190106
  4. CARDENSIEL [Concomitant]
     Active Substance: BISOPROLOL FUMARATE
     Dosage: 0.45 MG, DAILY
     Route: 065
  5. ANDROTARDYL [Concomitant]
     Active Substance: TESTOSTERONE
     Indication: PRODUCT USED FOR UNKNOWN INDICATION
     Dosage: UNK, UNKNOWN
     Route: 065
  6. ABILIFY [Suspect]
     Active Substance: ARIPIPRAZOLE
     Dosage: 2.5 MG, DAILY
     Route: 048
  7. CIALIS [Suspect]
     Active Substance: TADALAFIL
     Indication: PRODUCT USED FOR UNKNOWN INDICATION
     Dosage: UNK UNK, UNKNOWN
     Route: 065
  8. ABILIFY [Suspect]
     Active Substance: ARIPIPRAZOLE
     Indication: SCHIZOPHRENIA
     Dosage: 8.5 MG, DAILY
     Route: 048
  9. ABILIFY [Suspect]
     Active Substance: ARIPIPRAZOLE
     Dosage: 3.5 MG, DAILY
     Route: 048
     Dates: start: 20190624
  10. ABILIFY [Suspect]
     Active Substance: ARIPIPRAZOLE
     Dosage: 5.5-6 MG, DAILY
     Route: 048
     Dates: start: 20190924
  11. ABILIFY [Suspect]
     Active Substance: ARIPIPRAZOLE
     Dosage: 4 MG, DAILY
     Route: 048
     Dates: start: 20190524
  12. ABILIFY [Suspect]
     Active Substance: ARIPIPRAZOLE
     Dosage: 10 MG, DAILY
     Route: 048
  13. CARDENSIEL [Concomitant]
     Active Substance: BISOPROLOL FUMARATE
     Indication: VARICES OESOPHAGEAL
     Dosage: 0.9 MG, DAILY
     Route: 065
  14. CARDENSIEL [Concomitant]
     Active Substance: BISOPROLOL FUMARATE
     Dosage: 3.75 MG, DAILY
     Route: 065
  15. PREVISCAN [FLUINDIONE] [Concomitant]
     Active Substance: FLUINDIONE
     Indication: THROMBOSIS
     Dosage: UNK UNK, UNKNOWN
     Route: 065
  16. ABILIFY [Suspect]
     Active Substance: ARIPIPRAZOLE
     Dosage: 1.5 MG, DAILY
     Route: 048
  17. ABILIFY [Suspect]
     Active Substance: ARIPIPRAZOLE
     Dosage: 4.5 MG, DAILY
     Route: 048
  18. ABILIFY [Suspect]
     Active Substance: ARIPIPRAZOLE
     Dosage: 1.7 MG, DAILY
     Route: 048
  19. GLUTAMIN [LEVOGLUTAMIDE] [Concomitant]
     Indication: PRODUCT USED FOR UNKNOWN INDICATION
     Dosage: UNK UNK, UNKNOWN
     Route: 065
  20. ABILIFY [Suspect]
     Active Substance: ARIPIPRAZOLE
     Dosage: 3 MG, DAILY
     Route: 048
  21. ABILIFY [Suspect]
     Active Substance: ARIPIPRAZOLE
     Dosage: 2 MG, DAILY
     Route: 048
     Dates: start: 20190924
  22. CARDENSIEL [Concomitant]
     Active Substance: BISOPROLOL FUMARATE
     Dosage: 1.25 MG, DAILY
     Route: 065
  23. XARELTO [Concomitant]
     Active Substance: RIVAROXABAN
     Indication: THROMBOSIS
     Dosage: UNK, UNKNOWN
     Route: 065
  24. CARDENSIEL [Concomitant]
     Active Substance: BISOPROLOL FUMARATE
     Dosage: 3.75 MG, DAILY
     Route: 065

REACTIONS (19)
  - Libido decreased [Recovered/Resolved]
  - Blood testosterone decreased [Unknown]
  - Blood iron decreased [Recovered/Resolved]
  - Insomnia [Recovered/Resolved]
  - Thyroid function test abnormal [Not Recovered/Not Resolved]
  - Erectile dysfunction [Not Recovered/Not Resolved]
  - Phlebitis [Not Recovered/Not Resolved]
  - Cerebral disorder [Unknown]
  - Gastrointestinal disorder [Recovered/Resolved]
  - Weight decreased [Unknown]
  - Visual impairment [Not Recovered/Not Resolved]
  - Somnolence [Unknown]
  - Treatment noncompliance [Unknown]
  - Serum ferritin decreased [Recovered/Resolved]
  - Hypoxia [Recovered/Resolved]
  - Fatigue [Recovered/Resolved]
  - Dizziness [Unknown]
  - Thyroxine decreased [Recovered/Resolved]
  - Paraesthesia [Recovered/Resolved]
